FAERS Safety Report 26110187 (Version 1)
Quarter: 2025Q4

REPORT INFORMATION
  Report Type: Spontaneous
  Country: CN (occurrence: CN)
  Receive Date: 20251202
  Receipt Date: 20251202
  Transmission Date: 20260117
  Serious: Yes (Other)
  Sender: KVK-TECH
  Company Number: CN-KVK-TECH, INC-20251100170

PATIENT
  Age: 68 Year
  Sex: Male

DRUGS (8)
  1. THIOTEPA [Suspect]
     Active Substance: THIOTEPA
     Indication: Non-small cell lung cancer
     Dosage: 10 MILLIGRAM, UNKNOWN
     Route: 037
     Dates: start: 2023
  2. THIOTEPA [Suspect]
     Active Substance: THIOTEPA
     Indication: Metastases to meninges
  3. DEXAMETHASONE [Suspect]
     Active Substance: DEXAMETHASONE
     Indication: Non-small cell lung cancer
     Dosage: 5 MILLIGRAM
     Route: 065
     Dates: start: 2022
  4. DEXAMETHASONE [Suspect]
     Active Substance: DEXAMETHASONE
     Indication: Metastases to meninges
  5. TISLELIZUMAB [Suspect]
     Active Substance: TISLELIZUMAB
     Indication: Metastases to meninges
     Dosage: UNK UNK, UNKNOWN
     Route: 042
  6. TISLELIZUMAB [Suspect]
     Active Substance: TISLELIZUMAB
     Indication: Non-small cell lung cancer
     Dosage: 200 MILLIGRAM, UNKNOWN
     Route: 042
     Dates: start: 2022
  7. BEVACIZUMAB [Suspect]
     Active Substance: BEVACIZUMAB
     Indication: Non-small cell lung cancer
     Dosage: UNK UNK, UNKNOWN
     Route: 042
     Dates: start: 2023
  8. BEVACIZUMAB [Suspect]
     Active Substance: BEVACIZUMAB
     Indication: Metastases to meninges
     Dosage: UNK, UNKNOWN
     Route: 042
     Dates: start: 20220507

REACTIONS (1)
  - Thrombocytopenia [Recovered/Resolved]
